FAERS Safety Report 9486252 (Version 2)
Quarter: 2013Q3

REPORT INFORMATION
  Report Type: Spontaneous
  Country: US (occurrence: US)
  Receive Date: 20130829
  Receipt Date: 20130829
  Transmission Date: 20140515
  Serious: No
  Sender: FDA-Public Use
  Company Number: US-PFIZER INC-2013240863

PATIENT
  Age: 95 Year
  Sex: Male

DRUGS (1)
  1. XALATAN [Suspect]
     Dosage: 1 GTT, 1X/DAY
     Route: 047
     Dates: start: 200107

REACTIONS (3)
  - Visual acuity reduced [Unknown]
  - Product quality issue [Unknown]
  - Product container issue [Unknown]
